FAERS Safety Report 11321475 (Version 1)
Quarter: 2015Q3

REPORT INFORMATION
  Report Type: Spontaneous
  Country: US (occurrence: US)
  Receive Date: 20150729
  Receipt Date: 20150729
  Transmission Date: 20151125
  Serious: No
  Sender: FDA-Public Use
  Company Number: US-ENDO PHARMACEUTICALS INC.-2015-001359

PATIENT
  Age: 58 Year
  Sex: Male
  Weight: 97.61 kg

DRUGS (1)
  1. TESTOPEL [Suspect]
     Active Substance: TESTOSTERONE
     Indication: BLOOD TESTOSTERONE DECREASED
     Dosage: 10 PELLETS
     Route: 065
     Dates: start: 20150603

REACTIONS (3)
  - Overdose [Unknown]
  - Implant site pain [Unknown]
  - Implant site bruising [Unknown]

NARRATIVE: CASE EVENT DATE: 20150603
